FAERS Safety Report 7183692-6 (Version None)
Quarter: 2010Q4

REPORT INFORMATION
  Report Type: 
  Country: None (occurrence: None)
  Receive Date: 20101220
  Receipt Date: 20101220
  Transmission Date: 20110411
  Serious: Yes (Hospitalization)
  Sender: FDA-Public Use
  Company Number: None

PATIENT
  Age: 57 Year
  Sex: Male
  Weight: 106.8 kg

DRUGS (13)
  1. SPIRONOLACTONE [Suspect]
     Indication: HYPERTENSION
     Dosage: 25MG BID PO CHRONIC
     Route: 048
  2. RAMIPRIL [Suspect]
     Indication: HYPERTENSION
     Dosage: 5MG BID PO CHRONIC
     Route: 048
  3. ALLI [Concomitant]
  4. M.V.I. [Concomitant]
  5. DIGOXIN [Concomitant]
  6. COREG [Concomitant]
  7. LOPID [Concomitant]
  8. LANTUS [Concomitant]
  9. HUMALOG [Concomitant]
  10. VICODIN [Concomitant]
  11. CIPRO [Concomitant]
  12. SEPTRA DS [Concomitant]
  13. ASA [Concomitant]

REACTIONS (4)
  - COLONIC POLYP [None]
  - DEHYDRATION [None]
  - HYPERKALAEMIA [None]
  - HYPOPHAGIA [None]
